FAERS Safety Report 8538539-X (Version None)
Quarter: 2012Q3

REPORT INFORMATION
  Report Type: 
  Country: None (occurrence: None)
  Receive Date: 20120726
  Receipt Date: 20120712
  Transmission Date: 20120928
  Serious: Yes (Hospitalization)
  Sender: FDA-Public Use
  Company Number: US-JNJFOC-20120708401

PATIENT
  Sex: Male

DRUGS (1)
  1. RISPERDAL CONSTA [Suspect]
     Indication: SCHIZOAFFECTIVE DISORDER
     Route: 030
     Dates: start: 20120101

REACTIONS (5)
  - DISTURBANCE IN SOCIAL BEHAVIOUR [None]
  - PARANOIA [None]
  - DRUG INTOLERANCE [None]
  - INSOMNIA [None]
  - AGGRESSION [None]
